FAERS Safety Report 4619522-3 (Version None)
Quarter: 2005Q1

REPORT INFORMATION
  Report Type: 
  Country: None (occurrence: None)
  Receive Date: 20050324
  Receipt Date: 20050310
  Transmission Date: 20050727
  Serious: Yes (Hospitalization, Other)
  Sender: FDA-Public Use
  Company Number: HQWYE064511MAR05

PATIENT
  Sex: Female

DRUGS (5)
  1. PREMPRO [Suspect]
  2. ESTRACE [Suspect]
  3. OGEN [Suspect]
  4. PREMARIN [Suspect]
  5. PROVERA [Suspect]

REACTIONS (3)
  - BREAST CANCER METASTATIC [None]
  - CARDIAC DISORDER [None]
  - POST PROCEDURAL COMPLICATION [None]
